FAERS Safety Report 18050650 (Version 1)
Quarter: 2020Q3

REPORT INFORMATION
  Report Type: Spontaneous
  Country: US (occurrence: US)
  Receive Date: 20200721
  Receipt Date: 20200721
  Transmission Date: 20201103
  Serious: No
  Sender: FDA-Public Use
  Company Number: US-VERTEX PHARMACEUTICALS-2020-014942

PATIENT
  Age: 7 Year
  Sex: Female
  Weight: 17 kg

DRUGS (1)
  1. TRIKAFTA [Suspect]
     Active Substance: ELEXACAFTOR\IVACAFTOR\TEZACAFTOR
     Indication: CYSTIC FIBROSIS
     Dosage: 1 ORANGE TAB (100 MG ELEXA/ 50 MG TEZA/ 75 MG IVA)AM; 1/2 BLUE TAB (150MG IVA) PM
     Route: 048

REACTIONS (1)
  - Off label use [Unknown]
